FAERS Safety Report 20848863 (Version 1)
Quarter: 2022Q2

REPORT INFORMATION
  Report Type: Spontaneous
  Country: US (occurrence: US)
  Receive Date: 20220519
  Receipt Date: 20220519
  Transmission Date: 20220721
  Serious: No
  Sender: FDA-Public Use
  Company Number: US-PFIZER INC-202200604391

PATIENT
  Age: 77 Year
  Sex: Female
  Weight: 81.65 kg

DRUGS (1)
  1. CYTOMEL [Suspect]
     Active Substance: LIOTHYRONINE SODIUM
     Indication: Tri-iodothyronine abnormal
     Dosage: 5 UG, 3X/DAY
     Dates: start: 1986

REACTIONS (3)
  - Off label use [Unknown]
  - Therapeutic response unexpected [Unknown]
  - Body height decreased [Unknown]
